FAERS Safety Report 15983441 (Version 1)
Quarter: 2019Q1

REPORT INFORMATION
  Report Type: Spontaneous
  Country: DK (occurrence: DK)
  Receive Date: 20190220
  Receipt Date: 20190220
  Transmission Date: 20190418
  Serious: Yes (Hospitalization)
  Sender: FDA-Public Use
  Company Number: DK-ABBVIE-19K-044-2670153-00

PATIENT
  Age: 45 Year
  Sex: Male

DRUGS (6)
  1. HUMIRA [Suspect]
     Active Substance: ADALIMUMAB
     Indication: PSORIASIS
     Dosage: DOSIS: F?RSTE DOSIS 80 MG, DEREFTER 40 MG EFTER 1 UGE, S? 40 MG HVER 2. UGE.
     Route: 058
     Dates: start: 20151120, end: 20151120
  2. ZOLOFT [Concomitant]
     Active Substance: SERTRALINE HYDROCHLORIDE
     Indication: DEPRESSION
     Dates: end: 20160303
  3. HUMIRA [Suspect]
     Active Substance: ADALIMUMAB
     Route: 058
     Dates: start: 20151211, end: 20160515
  4. VENLAFAXINE [Concomitant]
     Active Substance: VENLAFAXINE HYDROCHLORIDE
     Indication: DEPRESSION
     Dates: start: 20160303
  5. HUMIRA [Suspect]
     Active Substance: ADALIMUMAB
     Dosage: DOSAGE: FIRST DOSE 80 MG, THEN 40 MG AFTER 1 WEEK, THEN 40 MG EVERY 2 WEEKS.
     Route: 058
     Dates: start: 20151127, end: 20151127
  6. SERTRALINE [Concomitant]
     Active Substance: SERTRALINE HYDROCHLORIDE
     Indication: ANXIETY
     Dosage: F?ET SERTRALIN I FLERE ?R

REACTIONS (5)
  - Mood swings [Unknown]
  - Infection [Unknown]
  - Intracardiac thrombus [Unknown]
  - Penile dysplasia [Unknown]
  - Depression [Unknown]

NARRATIVE: CASE EVENT DATE: 2015
